FAERS Safety Report 16185340 (Version 1)
Quarter: 2019Q2

REPORT INFORMATION
  Report Type: Not Available
  Country: US (occurrence: US)
  Receive Date: 20190411
  Receipt Date: 20190411
  Transmission Date: 20190711
  Serious: No
  Sender: FDA-Public Use
  Company Number: US-NEUROCRINE BIOSCIENCES INC.-2019NBI00839

PATIENT
  Sex: Male

DRUGS (4)
  1. INGREZZA [Suspect]
     Active Substance: VALBENAZINE
     Indication: TARDIVE DYSKINESIA
     Route: 048
  2. BENZTROPINE. [Concomitant]
     Active Substance: BENZTROPINE
  3. INVEGA [Concomitant]
     Active Substance: PALIPERIDONE
  4. INVEGA SUSTENNA [Concomitant]
     Active Substance: PALIPERIDONE PALMITATE

REACTIONS (1)
  - Visual impairment [Unknown]
